FAERS Safety Report 9895152 (Version 1)
Quarter: 2014Q1

REPORT INFORMATION
  Report Type: Spontaneous
  Country: US (occurrence: US)
  Receive Date: 20140213
  Receipt Date: 20140213
  Transmission Date: 20141002
  Serious: Yes (Other)
  Sender: FDA-Public Use
  Company Number: US-BRISTOL-MYERS SQUIBB COMPANY-18917757

PATIENT
  Age: 50 Year
  Sex: Female
  Weight: 95.24 kg

DRUGS (2)
  1. ORENCIA [Suspect]
     Dosage: LAST INFUSION:  30APR2013?2 INFUSIONS
     Route: 042
     Dates: start: 201304
  2. SYNTHROID [Concomitant]

REACTIONS (2)
  - Palpitations [Not Recovered/Not Resolved]
  - Dizziness [Not Recovered/Not Resolved]
